FAERS Safety Report 26157663 (Version 1)
Quarter: 2025Q4

REPORT INFORMATION
  Report Type: Spontaneous
  Country: US (occurrence: None)
  Receive Date: 20251212
  Receipt Date: 20251212
  Transmission Date: 20260118
  Serious: Yes (Death)
  Sender: FDA-CTU
  Company Number: None

PATIENT
  Age: 76 Year
  Sex: Female

DRUGS (1)
  1. TADALAFIL [Suspect]
     Active Substance: TADALAFIL
     Indication: Heritable pulmonary arterial hypertension
     Dosage: FREQUENCY : DAILY;
     Route: 048
     Dates: start: 20200116, end: 20251110

REACTIONS (1)
  - Death [None]

NARRATIVE: CASE EVENT DATE: 20251110
